FAERS Safety Report 21279567 (Version 1)
Quarter: 2022Q3

REPORT INFORMATION
  Report Type: Spontaneous
  Country: US (occurrence: None)
  Receive Date: 20220831
  Receipt Date: 20220831
  Transmission Date: 20221026
  Serious: No
  Sender: FDA-Public Use
  Company Number: None

PATIENT
  Sex: Female

DRUGS (1)
  1. MAKENA [Suspect]
     Active Substance: HYDROXYPROGESTERONE CAPROATE
     Indication: Pregnancy
     Dosage: 275MG WEEKLY UNDER THE SKIN?
     Route: 058
     Dates: start: 202207

REACTIONS (3)
  - Injection site reaction [None]
  - Injection site rash [None]
  - Device defective [None]
